FAERS Safety Report 7159916-8 (Version None)
Quarter: 2010Q4

REPORT INFORMATION
  Report Type: 
  Country: None (occurrence: None)
  Receive Date: 20101214
  Receipt Date: 20101203
  Transmission Date: 20110411
  Serious: Yes (Hospitalization)
  Sender: FDA-Public Use
  Company Number: PHHO2010CH18352

PATIENT

DRUGS (3)
  1. CGS 20267 T30748+TAB [Suspect]
     Indication: BREAST CANCER
     Dosage: 2.5 MG, QD
     Route: 048
     Dates: start: 20080820
  2. DAFALGAN [Concomitant]
  3. CELEBREX [Concomitant]

REACTIONS (4)
  - DEBRIDEMENT [None]
  - ESCHERICHIA INFECTION [None]
  - WOUND INFECTION [None]
  - WOUND TREATMENT [None]
